FAERS Safety Report 8482651-0 (Version None)
Quarter: 2012Q3

REPORT INFORMATION
  Report Type: 
  Country: None (occurrence: None)
  Receive Date: 20120702
  Receipt Date: 20120622
  Transmission Date: 20120928
  Serious: Yes (Other)
  Sender: FDA-Public Use
  Company Number: JP-MERCK-1206USA04781

PATIENT
  Age: 43 Year
  Sex: Male

DRUGS (2)
  1. [THERAPY UNSPECIFIED] [Suspect]
     Route: 065
     Dates: start: 20110501, end: 20110601
  2. SINGULAIR [Suspect]
     Route: 048
     Dates: start: 20110501, end: 20110601

REACTIONS (1)
  - DRUG ERUPTION [None]
